FAERS Safety Report 5629733-6 (Version None)
Quarter: 2008Q1

REPORT INFORMATION
  Report Type: 
  Country: None (occurrence: None)
  Receive Date: 20080218
  Receipt Date: 19960905
  Transmission Date: 20080703
  Serious: Yes (Hospitalization)
  Sender: FDA-Public Use
  Company Number: US-MERCK-96081185

PATIENT
  Age: 40 Year
  Sex: Female

DRUGS (3)
  1. CRIXIVAN [Suspect]
     Indication: HIV INFECTION
     Route: 048
     Dates: start: 19960501, end: 19960101
  2. DIDANOSINE [Concomitant]
     Route: 065
  3. ZOLOFT [Concomitant]
     Route: 065

REACTIONS (3)
  - BURNING SENSATION [None]
  - NEPHROLITHIASIS [None]
  - PYELONEPHRITIS [None]
